FAERS Safety Report 13834531 (Version 4)
Quarter: 2017Q4

REPORT INFORMATION
  Report Type: Report from Study
  Country: NL (occurrence: NL)
  Receive Date: 20170804
  Receipt Date: 20171124
  Transmission Date: 20180320
  Serious: Yes (Hospitalization, Other)
  Sender: FDA-Public Use
  Company Number: NL-AMGEN-NLDSL2017115425

PATIENT
  Age: 67 Year
  Sex: Female

DRUGS (12)
  1. PALLADON [Concomitant]
     Active Substance: HYDROMORPHONE
     Dosage: 24 UNK, UNK
  2. CLOPIDOGREL [Concomitant]
     Active Substance: CLOPIDOGREL BISULFATE
     Dosage: 75 MG, QD
  3. XGEVA [Suspect]
     Active Substance: DENOSUMAB
     Dosage: UNK
     Route: 058
  4. NORTRILEN [Concomitant]
     Active Substance: NORTRIPTYLINE
     Dosage: 25 MG, QD
  5. PANTOPRAZOL [Concomitant]
     Active Substance: PANTOPRAZOLE SODIUM
     Dosage: 40 MG, QD
  6. PALLADON [Concomitant]
     Active Substance: HYDROMORPHONE
     Dosage: 16 MG, TID
  7. SIMVASTATINE [Concomitant]
     Active Substance: SIMVASTATIN
     Dosage: 40 MG, QD
  8. XGEVA [Suspect]
     Active Substance: DENOSUMAB
     Indication: PROPHYLAXIS
     Dosage: 120 MG IN 1.70 ML, Q4WK
     Route: 058
  9. PARACETAMOL [Concomitant]
     Active Substance: ACETAMINOPHEN
     Dosage: 1000 MG, QID
  10. PREGABALINE [Concomitant]
     Active Substance: PREGABALIN
     Dosage: 75 MG, BID
  11. XGEVA [Suspect]
     Active Substance: DENOSUMAB
     Dosage: UNK
     Route: 058
  12. DOLOPHINE [Concomitant]
     Active Substance: METHADONE HYDROCHLORIDE
     Dosage: 10 MG, BID

REACTIONS (7)
  - Transient ischaemic attack [Recovered/Resolved]
  - Anaemia [Recovering/Resolving]
  - Cystitis noninfective [Recovered/Resolved]
  - Transplant [Not Recovered/Not Resolved]
  - Tooth extraction [Unknown]
  - Toothache [Not Recovered/Not Resolved]
  - Endodontic procedure [Recovering/Resolving]

NARRATIVE: CASE EVENT DATE: 20170720
